FAERS Safety Report 10224137 (Version 3)
Quarter: 2014Q3

REPORT INFORMATION
  Report Type: Spontaneous
  Country: JP (occurrence: JP)
  Receive Date: 20140609
  Receipt Date: 20140716
  Transmission Date: 20150326
  Serious: Yes (Hospitalization)
  Sender: FDA-Public Use
  Company Number: PHHY2014JP069501

PATIENT
  Age: 47 Year
  Sex: Female

DRUGS (5)
  1. ZOMETA [Suspect]
     Active Substance: ZOLEDRONIC ACID
     Indication: METASTASES TO BONE
  2. AREDIA [Suspect]
     Active Substance: PAMIDRONATE DISODIUM
     Indication: METASTASES TO BONE
  3. CHEMOTHERAPEUTICS [Concomitant]
     Active Substance: UNSPECIFIED INGREDIENT
     Indication: METASTASES TO BONE
     Dosage: UNK
     Dates: start: 201208
  4. ZOMETA [Suspect]
     Active Substance: ZOLEDRONIC ACID
     Indication: BREAST CANCER
     Route: 041
  5. AREDIA [Suspect]
     Active Substance: PAMIDRONATE DISODIUM
     Indication: BREAST CANCER
     Route: 041

REACTIONS (16)
  - Toothache [Recovering/Resolving]
  - Gingival swelling [Recovering/Resolving]
  - Gingivitis [Recovering/Resolving]
  - Impaired healing [Recovering/Resolving]
  - Gingival erythema [Recovering/Resolving]
  - Jaw disorder [Recovering/Resolving]
  - Osteonecrosis of jaw [Recovering/Resolving]
  - Osteomyelitis [Recovering/Resolving]
  - Aphagia [Recovering/Resolving]
  - Primary sequestrum [Recovering/Resolving]
  - Tenderness [Recovering/Resolving]
  - Soft tissue infection [Recovering/Resolving]
  - Fistula [Unknown]
  - Exposed bone in jaw [Recovered/Resolved]
  - Tooth loss [Unknown]
  - Osteitis [Recovering/Resolving]

NARRATIVE: CASE EVENT DATE: 200910
